FAERS Safety Report 24611384 (Version 2)
Quarter: 2025Q1

REPORT INFORMATION
  Report Type: Spontaneous
  Country: US (occurrence: US)
  Receive Date: 20241113
  Receipt Date: 20250128
  Transmission Date: 20250408
  Serious: No
  Sender: NOVARTIS
  Company Number: US-002147023-NVSC2024US217463

PATIENT
  Sex: Female

DRUGS (1)
  1. KESIMPTA [Suspect]
     Active Substance: OFATUMUMAB
     Indication: Product used for unknown indication
     Dosage: UNK, QMO (20 MG/0.4 ML)
     Route: 065
     Dates: start: 20201102

REACTIONS (3)
  - Illness [Unknown]
  - Product dose omission issue [Unknown]
  - Device breakage [Unknown]
